FAERS Safety Report 8605023-4 (Version None)
Quarter: 2012Q3

REPORT INFORMATION
  Report Type: 
  Country: None (occurrence: None)
  Receive Date: 20120820
  Receipt Date: 20120510
  Transmission Date: 20120928
  Serious: Yes (Hospitalization, Other)
  Sender: FDA-Public Use
  Company Number: JP-009507513-1208JPN007325

PATIENT

DRUGS (18)
  1. UBIRON [Concomitant]
     Indication: HEPATITIS C
     Route: 048
  2. PEG-INTRON [Suspect]
     Indication: HEPATITIS C
     Dosage: 1.8MCG/KG/WEEK
     Route: 058
     Dates: start: 20120306, end: 20120513
  3. TELAVIC [Suspect]
     Route: 048
     Dates: start: 20120424, end: 20120507
  4. REBETOL [Suspect]
     Route: 048
     Dates: start: 20120319, end: 20120430
  5. TELAVIC [Suspect]
     Indication: HEPATITIS C
     Route: 048
     Dates: start: 20120306, end: 20120423
  6. REBAMIPIDE [Concomitant]
     Route: 048
     Dates: start: 20120306
  7. ELIETEN [Concomitant]
     Indication: PROPHYLAXIS
     Route: 048
     Dates: start: 20120313
  8. LOSARTAN POTASSIUM [Concomitant]
     Indication: HYPERTENSION
     Route: 048
     Dates: start: 20120427
  9. PEG-INTRON [Suspect]
     Dosage: 1.4MCG/KG/WEEK
     Route: 058
     Dates: start: 20120514
  10. LENDEM D [Concomitant]
     Indication: PROPHYLAXIS
     Route: 048
     Dates: start: 20120307
  11. REBETOL [Suspect]
     Indication: HEPATITIS C
     Route: 048
     Dates: start: 20120306, end: 20120318
  12. EPADEL S [Concomitant]
     Indication: PROPHYLAXIS
     Route: 048
     Dates: start: 20120306
  13. REBETOL [Suspect]
     Route: 048
     Dates: start: 20120529
  14. TELAVIC [Suspect]
     Route: 048
     Dates: start: 20120508, end: 20120508
  15. REBAMIPIDE [Concomitant]
     Indication: PROPHYLAXIS
     Route: 048
  16. BISOPROLOL FUMARATE [Concomitant]
     Indication: HYPERTENSION
     Route: 048
     Dates: end: 20120323
  17. PROMAC (NITROFURANTOIN) [Concomitant]
     Indication: PROPHYLAXIS
     Route: 048
     Dates: start: 20120306
  18. REBETOL [Suspect]
     Route: 048
     Dates: start: 20120501, end: 20120528

REACTIONS (2)
  - HAEMOGLOBIN DECREASED [None]
  - RENAL IMPAIRMENT [None]
